FAERS Safety Report 20234879 (Version 1)
Quarter: 2021Q4

REPORT INFORMATION
  Report Type: Spontaneous
  Country: US (occurrence: US)
  Receive Date: 20211227
  Receipt Date: 20211227
  Transmission Date: 20220304
  Serious: Yes (Other)
  Sender: FDA-Public Use
  Company Number: US-PURDUE-USA-2020-0210258

PATIENT
  Sex: Male

DRUGS (3)
  1. OXYCONTIN [Suspect]
     Active Substance: OXYCODONE HYDROCHLORIDE
     Indication: Pain
     Dosage: 10 MG, 2TABLETS IN AM AND 1 TABLET AT NIGHT
     Route: 048
  2. HYDROCODONE BITARTRATE AND ACETAMINOPHEN [Suspect]
     Active Substance: ACETAMINOPHEN\HYDROCODONE BITARTRATE
     Indication: Pain
     Dosage: (10-325 MG),Q6H PRN (1 TABLET)
     Route: 048
  3. ACETAMINOPHEN\OXYCODONE HYDROCHLORIDE [Suspect]
     Active Substance: ACETAMINOPHEN\OXYCODONE HYDROCHLORIDE
     Indication: Product used for unknown indication
     Dosage: UNKNOWN
     Route: 048

REACTIONS (18)
  - Drug dependence [Unknown]
  - Rhinorrhoea [Unknown]
  - Amnesia [Unknown]
  - Disturbance in attention [Unknown]
  - Thinking abnormal [Unknown]
  - Anger [Unknown]
  - Irritability [Unknown]
  - Feeling jittery [Unknown]
  - Psychomotor hyperactivity [Unknown]
  - Balance disorder [Unknown]
  - Constipation [Unknown]
  - Abdominal discomfort [Unknown]
  - Headache [Unknown]
  - Nausea [Unknown]
  - Asthenia [Unknown]
  - Hyperhidrosis [Unknown]
  - Drug ineffective [Unknown]
  - Tremor [Unknown]
